FAERS Safety Report 6981863-2 (Version None)
Quarter: 2010Q3

REPORT INFORMATION
  Report Type: 
  Country: None (occurrence: None)
  Receive Date: 20100909
  Receipt Date: 20100902
  Transmission Date: 20110219
  Serious: Yes (Hospitalization, Other)
  Sender: FDA-Public Use
  Company Number: 018226

PATIENT
  Sex: Female
  Weight: 95.2 kg

DRUGS (6)
  1. CIMZIA [Suspect]
     Indication: RHEUMATOID ARTHRITIS
     Dosage: 400 MG 1X/4 WEEKS SUBCUTANEOUS
     Route: 058
     Dates: start: 20091219, end: 20100701
  2. DIOVAN [Concomitant]
  3. PAXIL [Concomitant]
  4. MELOXICAM [Concomitant]
  5. METOPROLOL [Concomitant]
  6. NORVASC [Concomitant]

REACTIONS (1)
  - ARTHRITIS BACTERIAL [None]
